FAERS Safety Report 16027894 (Version 1)
Quarter: 2019Q1

REPORT INFORMATION
  Report Type: Spontaneous
  Country: US (occurrence: US)
  Receive Date: 20190304
  Receipt Date: 20190304
  Transmission Date: 20190418
  Serious: No
  Sender: FDA-Public Use
  Company Number: US-IMPAX LABORATORIES, LLC-2018-IPXL-01023

PATIENT
  Age: 75 Year
  Sex: Male

DRUGS (2)
  1. RYTARY [Suspect]
     Active Substance: CARBIDOPA\LEVODOPA
     Dosage: 23.75/95 MG, 4 CAPSULES THREE TIMES A DAY
     Route: 065
     Dates: start: 2018, end: 201807
  2. RYTARY [Suspect]
     Active Substance: CARBIDOPA\LEVODOPA
     Indication: PARKINSON^S DISEASE
     Dosage: 23.75 MG, 4 CAPSULES 3 TIMES A DAY
     Route: 065
     Dates: start: 201803, end: 2018

REACTIONS (7)
  - Nausea [Unknown]
  - Drug effect incomplete [Unknown]
  - Abdominal discomfort [Recovered/Resolved]
  - Labelled drug-food interaction medication error [Unknown]
  - Tremor [Unknown]
  - Anxiety [Recovered/Resolved]
  - Therapeutic response shortened [Unknown]

NARRATIVE: CASE EVENT DATE: 2018
